FAERS Safety Report 5888927-5 (Version None)
Quarter: 2008Q3

REPORT INFORMATION
  Report Type: 
  Country: None (occurrence: None)
  Receive Date: 20080916
  Receipt Date: 20080916
  Transmission Date: 20090109
  Serious: No
  Sender: FDA-Public Use
  Company Number: None

PATIENT
  Sex: Female
  Weight: 45.3597 kg

DRUGS (2)
  1. LAMICTAL [Suspect]
     Dosage: 100 MG ONCE DAILY
  2. PINDOLOL [Concomitant]

REACTIONS (4)
  - DEPRESSION [None]
  - HEADACHE [None]
  - IRRITABILITY [None]
  - PHARMACEUTICAL PRODUCT COMPLAINT [None]
